FAERS Safety Report 20762926 (Version 26)
Quarter: 2025Q3

REPORT INFORMATION
  Report Type: Spontaneous
  Country: EU (occurrence: EU)
  Receive Date: 20220428
  Receipt Date: 20250918
  Transmission Date: 20251020
  Serious: Yes (Death, Other)
  Sender: NOVARTIS
  Company Number: GB-GSKCCFEMEA-Case01140699AE40315

PATIENT
  Sex: Female

DRUGS (148)
  1. CIPROFLOXACIN HYDROCHLORIDE [Suspect]
     Active Substance: CIPROFLOXACIN HYDROCHLORIDE
     Indication: Product used for unknown indication
     Route: 065
  2. CIPROFLOXACIN HYDROCHLORIDE [Suspect]
     Active Substance: CIPROFLOXACIN HYDROCHLORIDE
     Route: 065
  3. CIPROFLOXACIN HYDROCHLORIDE [Suspect]
     Active Substance: CIPROFLOXACIN HYDROCHLORIDE
     Route: 065
  4. CIPROFLOXACIN HYDROCHLORIDE [Suspect]
     Active Substance: CIPROFLOXACIN HYDROCHLORIDE
     Route: 065
  5. CIPROFLOXACIN HYDROCHLORIDE [Suspect]
     Active Substance: CIPROFLOXACIN HYDROCHLORIDE
     Route: 065
  6. CIPROFLOXACIN HYDROCHLORIDE [Suspect]
     Active Substance: CIPROFLOXACIN HYDROCHLORIDE
     Route: 065
  7. CIPROFLOXACIN HYDROCHLORIDE [Suspect]
     Active Substance: CIPROFLOXACIN HYDROCHLORIDE
     Route: 065
  8. CIPROFLOXACIN [Suspect]
     Active Substance: CIPROFLOXACIN
     Indication: Product used for unknown indication
     Route: 065
  9. CIPROFLOXACIN [Suspect]
     Active Substance: CIPROFLOXACIN
     Route: 065
  10. CIPROFLOXACIN [Suspect]
     Active Substance: CIPROFLOXACIN
     Route: 065
  11. CIPROFLOXACIN [Suspect]
     Active Substance: CIPROFLOXACIN
     Route: 065
  12. CIPROFLOXACIN [Suspect]
     Active Substance: CIPROFLOXACIN
     Route: 065
  13. CIPROFLOXACIN [Suspect]
     Active Substance: CIPROFLOXACIN
     Route: 065
  14. CIPROFLOXACIN [Suspect]
     Active Substance: CIPROFLOXACIN
     Route: 065
  15. CIPROFLOXACIN [Suspect]
     Active Substance: CIPROFLOXACIN
     Route: 065
  16. CIPROFLOXACIN [Suspect]
     Active Substance: CIPROFLOXACIN
     Route: 065
  17. CIPROFLOXACIN [Suspect]
     Active Substance: CIPROFLOXACIN
     Route: 065
  18. SALMETEROL [Suspect]
     Active Substance: SALMETEROL
     Indication: Product used for unknown indication
     Route: 055
  19. SALMETEROL [Suspect]
     Active Substance: SALMETEROL
     Route: 065
  20. SALMETEROL [Suspect]
     Active Substance: SALMETEROL
     Route: 065
  21. SALMETEROL [Suspect]
     Active Substance: SALMETEROL
     Route: 065
  22. SALMETEROL [Suspect]
     Active Substance: SALMETEROL
     Route: 055
  23. SALMETEROL [Suspect]
     Active Substance: SALMETEROL
     Route: 055
  24. SALMETEROL [Suspect]
     Active Substance: SALMETEROL
     Route: 055
  25. SALMETEROL [Suspect]
     Active Substance: SALMETEROL
     Route: 065
  26. SALMETEROL [Suspect]
     Active Substance: SALMETEROL
     Route: 065
  27. SALMETEROL [Suspect]
     Active Substance: SALMETEROL
     Route: 065
  28. SALMETEROL [Suspect]
     Active Substance: SALMETEROL
     Route: 065
  29. SALMETEROL [Suspect]
     Active Substance: SALMETEROL
     Route: 065
  30. ALBUTEROL [Suspect]
     Active Substance: ALBUTEROL
     Indication: Product used for unknown indication
     Route: 055
  31. ALBUTEROL [Suspect]
     Active Substance: ALBUTEROL
     Route: 055
  32. ALBUTEROL [Suspect]
     Active Substance: ALBUTEROL
     Route: 055
  33. ALBUTEROL [Suspect]
     Active Substance: ALBUTEROL
     Route: 055
  34. ALBUTEROL [Suspect]
     Active Substance: ALBUTEROL
     Route: 055
  35. ALBUTEROL [Suspect]
     Active Substance: ALBUTEROL
     Route: 055
  36. ALBUTEROL [Suspect]
     Active Substance: ALBUTEROL
     Route: 055
  37. ALBUTEROL [Suspect]
     Active Substance: ALBUTEROL
     Route: 055
  38. ALBUTEROL [Suspect]
     Active Substance: ALBUTEROL
     Route: 065
  39. ALBUTEROL [Suspect]
     Active Substance: ALBUTEROL
     Route: 065
  40. ALBUTEROL [Suspect]
     Active Substance: ALBUTEROL
     Route: 065
  41. ALBUTEROL [Suspect]
     Active Substance: ALBUTEROL
     Indication: Product used for unknown indication
     Route: 055
  42. ALBUTEROL [Suspect]
     Active Substance: ALBUTEROL
     Route: 055
  43. ALBUTEROL [Suspect]
     Active Substance: ALBUTEROL
     Route: 065
  44. ALBUTEROL [Suspect]
     Active Substance: ALBUTEROL
     Route: 055
  45. ALBUTEROL [Suspect]
     Active Substance: ALBUTEROL
     Route: 055
  46. ALBUTEROL [Suspect]
     Active Substance: ALBUTEROL
     Route: 065
  47. ALBUTEROL [Suspect]
     Active Substance: ALBUTEROL
     Route: 065
  48. ALBUTEROL [Suspect]
     Active Substance: ALBUTEROL
     Route: 065
  49. ALBUTEROL [Suspect]
     Active Substance: ALBUTEROL
     Route: 065
  50. ALBUTEROL [Suspect]
     Active Substance: ALBUTEROL
     Route: 065
  51. ALBUTEROL [Suspect]
     Active Substance: ALBUTEROL
     Route: 065
  52. ALBUTEROL [Suspect]
     Active Substance: ALBUTEROL
     Route: 065
  53. ALBUTEROL [Suspect]
     Active Substance: ALBUTEROL
     Route: 065
  54. ALBUTEROL [Suspect]
     Active Substance: ALBUTEROL
     Route: 065
  55. ALBUTEROL [Suspect]
     Active Substance: ALBUTEROL
     Route: 065
  56. ALBUTEROL [Suspect]
     Active Substance: ALBUTEROL
     Route: 065
  57. ALBUTEROL [Suspect]
     Active Substance: ALBUTEROL
     Route: 055
  58. ALBUTEROL [Suspect]
     Active Substance: ALBUTEROL
     Route: 065
  59. ONDANSETRON [Suspect]
     Active Substance: ONDANSETRON
     Indication: Product used for unknown indication
     Route: 065
  60. ONDANSETRON [Suspect]
     Active Substance: ONDANSETRON
     Route: 065
  61. ONDANSETRON [Suspect]
     Active Substance: ONDANSETRON
     Route: 065
  62. ONDANSETRON [Suspect]
     Active Substance: ONDANSETRON
     Route: 065
  63. SEREVENT DISKUS [Suspect]
     Active Substance: SALMETEROL XINAFOATE
     Indication: Product used for unknown indication
     Route: 055
  64. SEREVENT DISKUS [Suspect]
     Active Substance: SALMETEROL XINAFOATE
     Route: 055
  65. SEREVENT DISKUS [Suspect]
     Active Substance: SALMETEROL XINAFOATE
     Route: 065
  66. SEREVENT DISKUS [Suspect]
     Active Substance: SALMETEROL XINAFOATE
     Route: 055
  67. SEREVENT DISKUS [Suspect]
     Active Substance: SALMETEROL XINAFOATE
     Route: 055
  68. SEREVENT DISKUS [Suspect]
     Active Substance: SALMETEROL XINAFOATE
     Route: 055
  69. SEREVENT DISKUS [Suspect]
     Active Substance: SALMETEROL XINAFOATE
     Route: 055
  70. SEREVENT DISKUS [Suspect]
     Active Substance: SALMETEROL XINAFOATE
     Route: 055
  71. SEREVENT DISKUS [Suspect]
     Active Substance: SALMETEROL XINAFOATE
     Route: 065
  72. SEREVENT DISKUS [Suspect]
     Active Substance: SALMETEROL XINAFOATE
     Route: 065
  73. SEREVENT DISKUS [Suspect]
     Active Substance: SALMETEROL XINAFOATE
     Route: 065
  74. SEREVENT DISKUS [Suspect]
     Active Substance: SALMETEROL XINAFOATE
     Route: 065
  75. SEREVENT DISKUS [Suspect]
     Active Substance: SALMETEROL XINAFOATE
     Route: 065
  76. SEREVENT DISKUS [Suspect]
     Active Substance: SALMETEROL XINAFOATE
     Route: 065
  77. ALBUTEROL SULFATE [Suspect]
     Active Substance: ALBUTEROL SULFATE
     Indication: Product used for unknown indication
     Route: 055
  78. ALBUTEROL SULFATE [Suspect]
     Active Substance: ALBUTEROL SULFATE
     Route: 065
  79. ALBUTEROL SULFATE [Suspect]
     Active Substance: ALBUTEROL SULFATE
     Route: 065
  80. ALBUTEROL SULFATE [Suspect]
     Active Substance: ALBUTEROL SULFATE
     Route: 065
  81. ALBUTEROL SULFATE [Suspect]
     Active Substance: ALBUTEROL SULFATE
     Route: 055
  82. ALBUTEROL SULFATE [Suspect]
     Active Substance: ALBUTEROL SULFATE
     Route: 065
  83. ALBUTEROL SULFATE [Suspect]
     Active Substance: ALBUTEROL SULFATE
     Route: 065
  84. ALBUTEROL SULFATE [Suspect]
     Active Substance: ALBUTEROL SULFATE
     Route: 065
  85. ALBUTEROL SULFATE [Suspect]
     Active Substance: ALBUTEROL SULFATE
     Route: 065
  86. ALBUTEROL SULFATE [Suspect]
     Active Substance: ALBUTEROL SULFATE
     Route: 055
  87. CIPROFLOXACIN LACTATE [Suspect]
     Active Substance: CIPROFLOXACIN LACTATE
     Indication: Product used for unknown indication
     Route: 042
  88. CIPROFLOXACIN LACTATE [Suspect]
     Active Substance: CIPROFLOXACIN LACTATE
     Route: 055
  89. CIPROFLOXACIN LACTATE [Suspect]
     Active Substance: CIPROFLOXACIN LACTATE
     Route: 065
  90. CIPROFLOXACIN LACTATE [Suspect]
     Active Substance: CIPROFLOXACIN LACTATE
     Route: 065
  91. CIPROFLOXACIN LACTATE [Suspect]
     Active Substance: CIPROFLOXACIN LACTATE
     Route: 065
  92. CIPROFLOXACIN LACTATE [Suspect]
     Active Substance: CIPROFLOXACIN LACTATE
     Route: 065
  93. CIPROFLOXACIN LACTATE [Suspect]
     Active Substance: CIPROFLOXACIN LACTATE
     Route: 065
  94. CIPROFLOXACIN LACTATE [Suspect]
     Active Substance: CIPROFLOXACIN LACTATE
     Route: 065
  95. CIPROFLOXACIN LACTATE [Suspect]
     Active Substance: CIPROFLOXACIN LACTATE
     Route: 065
  96. CIPROFLOXACIN [Suspect]
     Active Substance: CIPROFLOXACIN
     Indication: Product used for unknown indication
     Route: 065
  97. SALMETEROL XINAFOATE [Suspect]
     Active Substance: SALMETEROL XINAFOATE
     Indication: Product used for unknown indication
     Route: 065
  98. SALMETEROL XINAFOATE [Suspect]
     Active Substance: SALMETEROL XINAFOATE
     Route: 065
  99. SALMETEROL XINAFOATE [Suspect]
     Active Substance: SALMETEROL XINAFOATE
     Route: 065
  100. SALMETEROL XINAFOATE [Suspect]
     Active Substance: SALMETEROL XINAFOATE
     Route: 055
  101. SALMETEROL XINAFOATE [Suspect]
     Active Substance: SALMETEROL XINAFOATE
     Route: 065
  102. SALMETEROL XINAFOATE [Suspect]
     Active Substance: SALMETEROL XINAFOATE
     Route: 055
  103. SALMETEROL XINAFOATE [Suspect]
     Active Substance: SALMETEROL XINAFOATE
     Route: 065
  104. SALMETEROL XINAFOATE [Suspect]
     Active Substance: SALMETEROL XINAFOATE
     Route: 065
  105. SALMETEROL XINAFOATE [Suspect]
     Active Substance: SALMETEROL XINAFOATE
     Route: 055
  106. SALMETEROL XINAFOATE [Suspect]
     Active Substance: SALMETEROL XINAFOATE
     Route: 065
  107. SALMETEROL XINAFOATE [Suspect]
     Active Substance: SALMETEROL XINAFOATE
     Route: 065
  108. SALMETEROL XINAFOATE [Suspect]
     Active Substance: SALMETEROL XINAFOATE
     Route: 065
  109. SALMETEROL XINAFOATE [Suspect]
     Active Substance: SALMETEROL XINAFOATE
     Route: 065
  110. SALMETEROL XINAFOATE [Suspect]
     Active Substance: SALMETEROL XINAFOATE
     Route: 065
  111. SALMETEROL XINAFOATE [Suspect]
     Active Substance: SALMETEROL XINAFOATE
     Route: 065
  112. SALMETEROL XINAFOATE [Suspect]
     Active Substance: SALMETEROL XINAFOATE
     Route: 065
  113. SALMETEROL XINAFOATE [Suspect]
     Active Substance: SALMETEROL XINAFOATE
     Route: 065
  114. SALMETEROL XINAFOATE [Suspect]
     Active Substance: SALMETEROL XINAFOATE
     Route: 065
  115. SALMETEROL XINAFOATE [Suspect]
     Active Substance: SALMETEROL XINAFOATE
     Route: 055
  116. SALMETEROL XINAFOATE [Suspect]
     Active Substance: SALMETEROL XINAFOATE
     Route: 065
  117. SALMETEROL XINAFOATE [Suspect]
     Active Substance: SALMETEROL XINAFOATE
     Route: 065
  118. SALMETEROL XINAFOATE [Suspect]
     Active Substance: SALMETEROL XINAFOATE
     Route: 055
  119. SALMETEROL XINAFOATE [Suspect]
     Active Substance: SALMETEROL XINAFOATE
     Route: 065
  120. SALMETEROL XINAFOATE [Suspect]
     Active Substance: SALMETEROL XINAFOATE
     Route: 065
  121. SALMETEROL XINAFOATE [Suspect]
     Active Substance: SALMETEROL XINAFOATE
     Route: 065
  122. SALMETEROL XINAFOATE [Suspect]
     Active Substance: SALMETEROL XINAFOATE
     Route: 065
  123. SALMETEROL XINAFOATE [Suspect]
     Active Substance: SALMETEROL XINAFOATE
     Route: 065
  124. SALMETEROL XINAFOATE [Suspect]
     Active Substance: SALMETEROL XINAFOATE
     Route: 055
  125. ENOXAPARIN [Suspect]
     Active Substance: ENOXAPARIN
     Indication: Product used for unknown indication
     Route: 065
  126. ENOXAPARIN [Suspect]
     Active Substance: ENOXAPARIN
     Route: 065
  127. ENOXAPARIN [Suspect]
     Active Substance: ENOXAPARIN
     Route: 065
  128. ENOXAPARIN [Suspect]
     Active Substance: ENOXAPARIN
     Route: 065
  129. ENOXAPARIN [Suspect]
     Active Substance: ENOXAPARIN
     Route: 064
  130. CIPROFLOXACIN [Suspect]
     Active Substance: CIPROFLOXACIN
     Indication: Product used for unknown indication
     Route: 065
  131. CIPROFLOXACIN [Suspect]
     Active Substance: CIPROFLOXACIN
     Route: 065
  132. CIPROFLOXACIN [Suspect]
     Active Substance: CIPROFLOXACIN
     Route: 065
  133. CIPROFLOXACIN [Suspect]
     Active Substance: CIPROFLOXACIN
     Route: 065
  134. CIPROFLOXACIN [Suspect]
     Active Substance: CIPROFLOXACIN
     Route: 065
  135. CIPROFLOXACIN [Suspect]
     Active Substance: CIPROFLOXACIN
     Route: 065
  136. CIPROFLOXACIN [Suspect]
     Active Substance: CIPROFLOXACIN
     Route: 065
  137. CIPROFLOXACIN [Suspect]
     Active Substance: CIPROFLOXACIN
     Indication: Product used for unknown indication
     Route: 055
  138. CIPROFLOXACIN [Suspect]
     Active Substance: CIPROFLOXACIN
     Route: 065
  139. CIPROFLOXACIN [Suspect]
     Active Substance: CIPROFLOXACIN
     Route: 065
  140. CIPROFLOXACIN [Suspect]
     Active Substance: CIPROFLOXACIN
     Route: 065
  141. CIPROFLOXACIN [Suspect]
     Active Substance: CIPROFLOXACIN
     Route: 065
  142. CIPROFLOXACIN [Suspect]
     Active Substance: CIPROFLOXACIN
     Route: 065
  143. CIPROFLOXACIN [Suspect]
     Active Substance: CIPROFLOXACIN
     Route: 065
  144. CIPROFLOXACIN [Suspect]
     Active Substance: CIPROFLOXACIN
     Route: 065
  145. CIPROFLOXACIN [Suspect]
     Active Substance: CIPROFLOXACIN
     Indication: Product used for unknown indication
     Route: 065
  146. CIPROFLOXACIN [Suspect]
     Active Substance: CIPROFLOXACIN
     Route: 065
  147. CIPROFLOXACIN [Suspect]
     Active Substance: CIPROFLOXACIN
     Route: 065
  148. CIPROFLOXACIN [Suspect]
     Active Substance: CIPROFLOXACIN
     Route: 065

REACTIONS (2)
  - Dysphonia [Fatal]
  - Death [Fatal]
